FAERS Safety Report 17902813 (Version 2)
Quarter: 2020Q3

REPORT INFORMATION
  Report Type: Spontaneous
  Country: US (occurrence: US)
  Receive Date: 20200617
  Receipt Date: 20200720
  Transmission Date: 20201103
  Serious: Yes (Life-Threatening, Hospitalization, Other)
  Sender: FDA-Public Use
  Company Number: US-AUROBINDO-AUR-APL-2020-028902

PATIENT
  Age: 16 Year
  Sex: Female

DRUGS (1)
  1. ACETAMINOPHEN. [Suspect]
     Active Substance: ACETAMINOPHEN
     Indication: PRODUCT USED FOR UNKNOWN INDICATION
     Dosage: 51 GRAM TOTAL (906 MG/KG)
     Route: 065

REACTIONS (8)
  - Pancreatitis acute [Recovering/Resolving]
  - Toxicity to various agents [Recovering/Resolving]
  - Drug level increased [Recovering/Resolving]
  - Haematemesis [Recovering/Resolving]
  - Transaminases increased [Recovering/Resolving]
  - Intentional overdose [Recovering/Resolving]
  - Vomiting [Recovering/Resolving]
  - Condition aggravated [Recovering/Resolving]
